FAERS Safety Report 9587933 (Version 4)
Quarter: 2013Q4

REPORT INFORMATION
  Report Type: Report from Study
  Country: US (occurrence: US)
  Receive Date: 20131003
  Receipt Date: 20131011
  Transmission Date: 20140711
  Serious: Yes (Death, Hospitalization)
  Sender: FDA-Public Use
  Company Number: PHHO2013US011334

PATIENT
  Age: 57 Year
  Sex: Female

DRUGS (21)
  1. STI571 [Suspect]
     Indication: STEM CELL TRANSPLANT
     Dosage: 200 MG, QD
     Route: 048
     Dates: start: 20130820, end: 20130826
  2. RITUXIMAB [Suspect]
     Indication: STEM CELL TRANSPLANT
     Route: 042
     Dates: end: 20130806
  3. ACYCLOVIR [Concomitant]
  4. ADVAIR [Concomitant]
  5. AZITHROMYCIN [Concomitant]
  6. CALCIFEROL [Concomitant]
  7. CLONAZEPAM [Concomitant]
  8. FENOFIBRATE [Concomitant]
  9. DIFLUCAN [Concomitant]
  10. FOLIC ACID [Concomitant]
  11. HYDROXYCHLOROQUINE [Concomitant]
  12. MEDROL [Concomitant]
  13. PAROXETINE [Concomitant]
  14. PROTOPIC [Concomitant]
  15. SINGULAIR [Concomitant]
  16. BACTRIM DS [Concomitant]
  17. SYNTHROID [Concomitant]
  18. TACROLIMUS [Concomitant]
  19. URSODIOL [Concomitant]
  20. RESTASIS [Concomitant]
  21. SUMATRIPTAN [Concomitant]

REACTIONS (1)
  - Bronchopulmonary aspergillosis [Fatal]
